FAERS Safety Report 15183518 (Version 1)
Quarter: 2018Q3

REPORT INFORMATION
  Report Type: Spontaneous
  Country: US (occurrence: US)
  Receive Date: 20180625
  Receipt Date: 20180625
  Transmission Date: 20181010
  Serious: Yes (Life-Threatening, Hospitalization)
  Sender: FDA-Public Use
  Company Number: None

PATIENT
  Age: 74 Year
  Sex: Male
  Weight: 107 kg

DRUGS (20)
  1. FUROSEMIDE 40 MG IV QD [Concomitant]
  2. DUONEB 2.5?0.5MG/3ML INHALED Q4HRS [Concomitant]
  3. EPOETIN ALFA 10,0000 UNITS/ML SQ QTUESDAY [Concomitant]
  4. HEPARIN 22 UNITS/KG/HR IV Q24HRS [Concomitant]
  5. CEFEPIME 2G IV Q24HRS FOR HAP/VAP [Concomitant]
  6. ACETAMINOPHEN 650 MG Q6H PRN PAIN [Concomitant]
  7. APIXABAN 5 MG Q12HRS [Concomitant]
  8. POTASSIUM CHLORIDE 20 MEQ PO QD [Concomitant]
  9. INSULIN REGULAR 4?10 UNITS SQ Q6HRS [Concomitant]
  10. BUDESONIDE 0.5MG/2ML PO BID [Concomitant]
  11. FENTANYL 300 MCG/HR IV Q24 HRS [Concomitant]
  12. LORAZEPAM 1 MG IVP Q4HRS PRN ANXIETY [Concomitant]
  13. METOCLOPRAMIDE 10MG IV Q6HRS PRN N/V [Concomitant]
  14. FERUMOXYTOL [Suspect]
     Active Substance: FERUMOXYTOL NON-STOICHIOMETRIC MAGNETITE
     Indication: IRON DEFICIENCY ANAEMIA
     Route: 041
     Dates: start: 20180428
  15. CLOPIDOGREL 75MG QD [Concomitant]
  16. VANCOMYCIN 1.25G IV Q24HRS [Concomitant]
  17. ATORVASTATIN 80 MG QD [Concomitant]
  18. METOPROLOL TARTRATE 25MG PO  Q6HRS [Concomitant]
  19. PANTOPRAZOLE 40MG PO QD [Concomitant]
  20. PEG 3350 17G PO QD [Concomitant]

REACTIONS (6)
  - Pulse absent [None]
  - Sinus tachycardia [None]
  - Unresponsive to stimuli [None]
  - Atrial fibrillation [None]
  - Hypersensitivity [None]
  - Hypotension [None]

NARRATIVE: CASE EVENT DATE: 20180428
